FAERS Safety Report 7209669-X (Version None)
Quarter: 2011Q1

REPORT INFORMATION
  Report Type: 
  Country: None (occurrence: None)
  Receive Date: 20110104
  Receipt Date: 20101230
  Transmission Date: 20110831
  Serious: Yes (Other)
  Sender: FDA-Public Use
  Company Number: FR-B.I. PHARMACEUTICALS,INC./RIDGEFIELD-2010-FF-00307FF

PATIENT
  Sex: Female

DRUGS (3)
  1. MOBIC [Suspect]
     Indication: PERIARTHRITIS
     Dosage: 15 MG
     Route: 048
     Dates: start: 20100118, end: 20100123
  2. OPIOID [Concomitant]
  3. IBUPROFEN [Suspect]
     Indication: PERIARTHRITIS
     Route: 048
     Dates: start: 20100110, end: 20100111

REACTIONS (3)
  - ABORTION [None]
  - DRUG EXPOSURE DURING PREGNANCY [None]
  - ABORTION INDUCED [None]
